FAERS Safety Report 7962701-8 (Version None)
Quarter: 2011Q4

REPORT INFORMATION
  Report Type: 
  Country: None (occurrence: None)
  Receive Date: 20111207
  Receipt Date: 20111129
  Transmission Date: 20120403
  Serious: Yes (Hospitalization, Other)
  Sender: FDA-Public Use
  Company Number: BR-ABBOTT-11P-020-0703768-00

PATIENT
  Sex: Female
  Weight: 74 kg

DRUGS (4)
  1. HUMIRA [Suspect]
     Indication: CROHN'S DISEASE
     Dosage: LOADING DOSE 160MG/EVERY 15 DAYS
     Route: 058
     Dates: start: 20100801, end: 20110101
  2. CLONAZEPAM [Concomitant]
     Indication: SLEEP DISORDER THERAPY
     Route: 048
     Dates: start: 20101001
  3. HUMIRA [Suspect]
     Route: 058
     Dates: start: 20110101
  4. UNKNOWN MEDICATION [Concomitant]
     Indication: PRODUCT USED FOR UNKNOWN INDICATION

REACTIONS (5)
  - RHEUMATOID ARTHRITIS [None]
  - NERVOUSNESS [None]
  - DEPRESSION [None]
  - INTESTINAL STENOSIS [None]
  - ARTHRALGIA [None]
